FAERS Safety Report 7935949-6 (Version None)
Quarter: 2011Q4

REPORT INFORMATION
  Report Type: 
  Country: None (occurrence: None)
  Receive Date: 20111123
  Receipt Date: 20111114
  Transmission Date: 20120403
  Serious: Yes (Other)
  Sender: FDA-Public Use
  Company Number: FR-ASTRAZENECA-2011SE47699

PATIENT
  Sex: Female
  Weight: 47 kg

DRUGS (2)
  1. VANDETANIB [Suspect]
     Route: 048
     Dates: start: 20110808, end: 20111107
  2. VANDETANIB [Suspect]
     Indication: THYROID CANCER
     Route: 048
     Dates: start: 20101213, end: 20110802

REACTIONS (3)
  - DISEASE PROGRESSION [None]
  - WEIGHT DECREASED [None]
  - MALNUTRITION [None]
